FAERS Safety Report 5454617-6 (Version None)
Quarter: 2007Q3

REPORT INFORMATION
  Report Type: 
  Country: None (occurrence: None)
  Receive Date: 20070917
  Receipt Date: 20070906
  Transmission Date: 20080115
  Serious: Yes (Death)
  Sender: FDA-Public Use
  Company Number: HQWYE128519JUL07

PATIENT
  Sex: Male

DRUGS (4)
  1. PROMETHAZINE HCL [Suspect]
     Dosage: UNKNOWN
  2. PSEUDOEPHEDRINE HYDROCHLORIDE [Suspect]
  3. BROMPHENIRAMINE [Suspect]
     Dosage: UNKNOWN
  4. ETHANOL [Suspect]
     Dosage: UNKNOWN

REACTIONS (1)
  - ACCIDENT [None]
